FAERS Safety Report 18991759 (Version 2)
Quarter: 2021Q1

REPORT INFORMATION
  Report Type: Spontaneous
  Country: IL (occurrence: IL)
  Receive Date: 20210310
  Receipt Date: 20210318
  Transmission Date: 20210420
  Serious: Yes (Other)
  Sender: FDA-Public Use
  Company Number: IL-BAYER-2021-102211

PATIENT
  Age: 35 Year
  Sex: Female

DRUGS (1)
  1. JANESS [Suspect]
     Active Substance: LEVONORGESTREL
     Dosage: 14 ?G PER DAY,CONTINOUSLY
     Route: 015
     Dates: start: 2020, end: 2021

REACTIONS (2)
  - Genital haemorrhage [None]
  - Breast cancer [None]
